FAERS Safety Report 5018439-2 (Version None)
Quarter: 2006Q2

REPORT INFORMATION
  Report Type: 
  Country: None (occurrence: None)
  Receive Date: 20060530
  Receipt Date: 20060511
  Transmission Date: 20061013
  Serious: Yes (Other)
  Sender: FDA-Public Use
  Company Number: 8011162

PATIENT
  Age: 22 Year
  Sex: Female
  Weight: 69.55 kg

DRUGS (7)
  1. KEPPRA [Suspect]
     Indication: MYOCLONIC EPILEPSY
     Dosage: PO
     Route: 048
     Dates: start: 20010101, end: 20010101
  2. KEPPRA [Suspect]
     Indication: MYOCLONIC EPILEPSY
     Dosage: 1500 MG 2/D PO
     Route: 048
     Dates: start: 20010101, end: 20051215
  3. DEPAKOTE [Suspect]
     Indication: MYOCLONIC EPILEPSY
  4. LAMICTAL [Suspect]
     Indication: MYOCLONIC EPILEPSY
     Dosage: 550 MG PO
     Route: 048
     Dates: start: 20010101, end: 20051026
  5. LAMICTAL [Suspect]
     Indication: MYOCLONIC EPILEPSY
     Dosage: 600 MG PO
     Route: 048
     Dates: start: 20051027
  6. BIRTH CONTROL PILLS [Concomitant]
  7. FOLGARD [Concomitant]

REACTIONS (2)
  - BRADYCARDIA [None]
  - SYNCOPE [None]
